FAERS Safety Report 22234517 (Version 2)
Quarter: 2023Q2

REPORT INFORMATION
  Report Type: Spontaneous
  Country: US (occurrence: US)
  Receive Date: 20230420
  Receipt Date: 20230517
  Transmission Date: 20230722
  Serious: Yes (Other)
  Sender: FDA-Public Use
  Company Number: US-BRISTOL-MYERS SQUIBB COMPANY-2023-053404

PATIENT
  Age: 79 Year
  Sex: Female
  Weight: 61.23 kg

DRUGS (1)
  1. POMALYST [Suspect]
     Active Substance: POMALIDOMIDE
     Indication: Plasma cell myeloma
     Dosage: 3WKSON,1WKOFF
     Route: 048
     Dates: start: 20230301

REACTIONS (11)
  - Fatigue [Unknown]
  - Neuropathy peripheral [Unknown]
  - Arthralgia [Unknown]
  - Pain in extremity [Unknown]
  - Nausea [Unknown]
  - Chest discomfort [Unknown]
  - Throat tightness [Unknown]
  - Dizziness [Unknown]
  - Tremor [Unknown]
  - Heart rate irregular [Unknown]
  - Cough [Unknown]

NARRATIVE: CASE EVENT DATE: 20230301
